FAERS Safety Report 24117113 (Version 1)
Quarter: 2024Q3

REPORT INFORMATION
  Report Type: Report from Study
  Country: DE (occurrence: DE)
  Receive Date: 20240722
  Receipt Date: 20240722
  Transmission Date: 20241017
  Serious: Yes (Hospitalization)
  Sender: EMD SERONO INC
  Company Number: DE-Merck Healthcare KGaA-2024038138

PATIENT
  Age: 9 Year
  Sex: Male

DRUGS (1)
  1. SAIZEN [Suspect]
     Active Substance: SOMATROPIN
     Indication: Product used for unknown indication
     Route: 058
     Dates: start: 2020

REACTIONS (1)
  - Neoplasm malignant [Unknown]
